FAERS Safety Report 10335010 (Version 1)
Quarter: 2014Q3

REPORT INFORMATION
  Report Type: Spontaneous
  Country: US (occurrence: None)
  Receive Date: 20140722
  Receipt Date: 20140722
  Transmission Date: 20150326
  Serious: Yes (Life-Threatening)
  Sender: FDA-Public Use
  Company Number: None

PATIENT
  Age: 64 Year
  Sex: Female
  Weight: 103.42 kg

DRUGS (4)
  1. JANUVIA [Suspect]
     Active Substance: SITAGLIPTIN PHOSPHATE
     Indication: BLOOD GLUCOSE INCREASED
     Route: 048
     Dates: start: 20140710, end: 20140710
  2. ACTOS [Concomitant]
     Active Substance: PIOGLITAZONE HYDROCHLORIDE
  3. DIOVAN [Concomitant]
     Active Substance: VALSARTAN
  4. VYTORIN [Concomitant]
     Active Substance: EZETIMIBE\SIMVASTATIN

REACTIONS (13)
  - Pruritus [None]
  - Oropharyngeal pain [None]
  - Swelling [None]
  - Nausea [None]
  - Hyperhidrosis [None]
  - Swollen tongue [None]
  - Malaise [None]
  - Abdominal pain upper [None]
  - Aphagia [None]
  - Asthenia [None]
  - Headache [None]
  - Vomiting [None]
  - Burning sensation [None]

NARRATIVE: CASE EVENT DATE: 20140710
